FAERS Safety Report 4623445-3 (Version None)
Quarter: 2005Q1

REPORT INFORMATION
  Report Type: 
  Country: None (occurrence: None)
  Receive Date: 20050330
  Receipt Date: 20050201
  Transmission Date: 20050727
  Serious: Yes (Hospitalization)
  Sender: FDA-Public Use
  Company Number: DE-MERCK-0502DEU00014

PATIENT
  Age: 52 Year
  Sex: Male
  Weight: 104 kg

DRUGS (9)
  1. VYTORIN [Suspect]
     Indication: HYPERLIPIDAEMIA
     Route: 048
     Dates: start: 20041201, end: 20050117
  2. TORSEMIDE [Concomitant]
     Indication: RENAL FAILURE CHRONIC
     Route: 048
  3. ASPIRIN [Concomitant]
     Route: 048
  4. TELMISARTAN [Concomitant]
     Indication: HYPERTENSION
     Route: 048
  5. METOPROLOL TARTRATE [Concomitant]
     Indication: HYPERTENSION
     Route: 048
  6. DOXAZOSIN MESYLATE [Concomitant]
     Indication: HYPERTENSION
     Route: 048
  7. ALLOPURINOL [Concomitant]
     Indication: HYPERURICAEMIA
     Route: 048
  8. INSULIN [Concomitant]
     Indication: DIABETES MELLITUS
     Route: 058
  9. IBUPROFEN [Concomitant]
     Route: 048
     Dates: start: 20050101, end: 20050116

REACTIONS (3)
  - ATRIOVENTRICULAR BLOCK COMPLETE [None]
  - BACK PAIN [None]
  - RHABDOMYOLYSIS [None]
